FAERS Safety Report 5329561-5 (Version None)
Quarter: 2007Q1

REPORT INFORMATION
  Report Type: 
  Country: None (occurrence: None)
  Receive Date: 20070227
  Receipt Date: 20061114
  Transmission Date: 20070707
  Serious: Yes (Other)
  Sender: FDA-Public Use
  Company Number: 471283

PATIENT
  Age: 27 Year
  Sex: Female

DRUGS (3)
  1. ACCUTANE [Suspect]
     Dosage: 40 MG 2 PER DAY ORAL
     Route: 048
     Dates: start: 20040415, end: 20040915
  2. DEPO-PROVERA SUSPENSION/INJ [Concomitant]
     Dates: start: 20040415, end: 20040915
  3. DEPO-PROVERA SUSPENSION/INJ [Concomitant]

REACTIONS (1)
  - OSTEOPENIA [None]
